FAERS Safety Report 6730911-3 (Version None)
Quarter: 2010Q2

REPORT INFORMATION
  Report Type: 
  Country: None (occurrence: None)
  Receive Date: 20100518
  Receipt Date: 20100512
  Transmission Date: 20101027
  Serious: Yes (Death, Life-Threatening, Hospitalization, Other)
  Sender: FDA-Public Use
  Company Number: PHHY2010CN25207

PATIENT
  Age: 37 Year
  Sex: Male

DRUGS (1)
  1. SEBIVO [Suspect]
     Indication: HEPATITIS B
     Dosage: 600 MG, DAILY
     Route: 048
     Dates: start: 20090915, end: 20100201

REACTIONS (31)
  - ABDOMINAL PAIN [None]
  - ABDOMINAL REBOUND TENDERNESS [None]
  - ABDOMINAL TENDERNESS [None]
  - ACUTE ABDOMEN [None]
  - ASTERIXIS [None]
  - BLOOD CREATINE PHOSPHOKINASE INCREASED [None]
  - BLOOD CREATINE PHOSPHOKINASE MB INCREASED [None]
  - BLOOD LACTIC ACID INCREASED [None]
  - BLOOD PRESSURE DECREASED [None]
  - BLOOD URINE PRESENT [None]
  - COMA HEPATIC [None]
  - DEATH [None]
  - DECREASED APPETITE [None]
  - ELECTROLYTE IMBALANCE [None]
  - ESCHERICHIA SEPSIS [None]
  - FATIGUE [None]
  - HEPATIC ENCEPHALOPATHY [None]
  - HEPATIC FAILURE [None]
  - HEPATITIS B [None]
  - JAUNDICE [None]
  - LACTIC ACIDOSIS [None]
  - LIPASE INCREASED [None]
  - MYOGLOBIN BLOOD INCREASED [None]
  - OCULAR ICTERUS [None]
  - PALLOR [None]
  - PERITONITIS BACTERIAL [None]
  - PROCTALGIA [None]
  - PYREXIA [None]
  - RHABDOMYOLYSIS [None]
  - SEPSIS [None]
  - SPIDER NAEVUS [None]
